FAERS Safety Report 20849928 (Version 2)
Quarter: 2023Q1

REPORT INFORMATION
  Report Type: Spontaneous
  Country: US (occurrence: US)
  Receive Date: 20220519
  Receipt Date: 20230109
  Transmission Date: 20230418
  Serious: No
  Sender: FDA-Public Use
  Company Number: US-PFIZER INC-2018525191

PATIENT
  Age: 72 Year
  Sex: Female

DRUGS (2)
  1. NIVESTYM [Suspect]
     Active Substance: FILGRASTIM-AAFI
     Indication: Pancytopenia
     Dosage: 300 UG, DAILY
  2. NIVESTYM [Suspect]
     Active Substance: FILGRASTIM-AAFI
     Indication: Refractory anaemia with an excess of blasts

REACTIONS (3)
  - Full blood count abnormal [Unknown]
  - Asthenia [Unknown]
  - Off label use [Unknown]
